FAERS Safety Report 18054508 (Version 1)
Quarter: 2020Q3

REPORT INFORMATION
  Report Type: Spontaneous
  Country: US (occurrence: US)
  Receive Date: 20200722
  Receipt Date: 20200722
  Transmission Date: 20201103
  Serious: Yes (Hospitalization)
  Sender: FDA-Public Use
  Company Number: None

PATIENT
  Age: 73 Year
  Sex: Male
  Weight: 81.9 kg

DRUGS (3)
  1. DEXAMETHASONE. [Suspect]
     Active Substance: DEXAMETHASONE
     Dates: end: 20181017
  2. VELCADE [Suspect]
     Active Substance: BORTEZOMIB
     Dates: end: 20181016
  3. LENALIDOMIDE [Suspect]
     Active Substance: LENALIDOMIDE
     Dates: end: 20200713

REACTIONS (3)
  - Colitis [None]
  - Infection [None]
  - Appendicitis [None]

NARRATIVE: CASE EVENT DATE: 20200714
